FAERS Safety Report 7476390-2 (Version None)
Quarter: 2011Q2

REPORT INFORMATION
  Report Type: 
  Country: None (occurrence: None)
  Receive Date: 20110512
  Receipt Date: 20110506
  Transmission Date: 20111010
  Serious: Yes (Hospitalization)
  Sender: FDA-Public Use
  Company Number: B0718236A

PATIENT
  Age: 65 Year
  Sex: Male

DRUGS (1)
  1. PROPAFENONE HCL [Suspect]
     Route: 048
     Dates: start: 20100801

REACTIONS (6)
  - ATRIAL FIBRILLATION [None]
  - ANXIETY [None]
  - SOMNOLENCE [None]
  - POOR QUALITY SLEEP [None]
  - INSOMNIA [None]
  - ARRHYTHMIA [None]
